FAERS Safety Report 12706967 (Version 1)
Quarter: 2016Q3

REPORT INFORMATION
  Report Type: Report from Study
  Country: SE (occurrence: SE)
  Receive Date: 20160901
  Receipt Date: 20160901
  Transmission Date: 20161109
  Serious: Yes (Hospitalization)
  Sender: FDA-Public Use
  Company Number: PHHY2016SE117587

PATIENT
  Sex: Female

DRUGS (2)
  1. EXJADE [Suspect]
     Active Substance: DEFERASIROX
     Indication: HAEMOCHROMATOSIS
  2. EXJADE [Suspect]
     Active Substance: DEFERASIROX
     Indication: CHRONIC LYMPHOCYTIC LEUKAEMIA
     Dosage: UNK UNK, QD
     Route: 048
     Dates: start: 20160527

REACTIONS (5)
  - Breast cancer [Unknown]
  - Second primary malignancy [Unknown]
  - Product use issue [Unknown]
  - Haemoglobin decreased [Unknown]
  - Fatigue [Unknown]
